FAERS Safety Report 13495658 (Version 1)
Quarter: 2017Q2

REPORT INFORMATION
  Report Type: Spontaneous
  Country: US (occurrence: US)
  Receive Date: 20170427
  Receipt Date: 20170427
  Transmission Date: 20170830
  Serious: Yes (Hospitalization)
  Sender: FDA-Public Use
  Company Number: None

PATIENT
  Age: 74 Year
  Sex: Male
  Weight: 79.65 kg

DRUGS (1)
  1. LISINOPRIL. [Suspect]
     Active Substance: LISINOPRIL
     Indication: HYPERTENSION
     Route: 048
     Dates: start: 20141113, end: 20170329

REACTIONS (12)
  - Nocturia [None]
  - Dysuria [None]
  - Night sweats [None]
  - Urinary tract infection [None]
  - Pollakiuria [None]
  - Orthostatic hypotension [None]
  - Pancytopenia [None]
  - Fall [None]
  - Back pain [None]
  - Dizziness [None]
  - Loss of consciousness [None]
  - Weight decreased [None]

NARRATIVE: CASE EVENT DATE: 20170329
